FAERS Safety Report 7822778-7 (Version None)
Quarter: 2011Q4

REPORT INFORMATION
  Report Type: 
  Country: None (occurrence: None)
  Receive Date: 20111018
  Receipt Date: 20110104
  Transmission Date: 20120403
  Serious: No
  Sender: FDA-Public Use
  Company Number: US-ASTRAZENECA-2011SE00436

PATIENT
  Age: 74 Year
  Sex: Female
  Weight: 61.2 kg

DRUGS (1)
  1. SYMBICORT [Suspect]
     Indication: ASTHMA
     Dosage: 80/4.5 MCG 2 BID
     Route: 055
     Dates: start: 20101005

REACTIONS (4)
  - TREMOR [None]
  - ANXIETY [None]
  - FATIGUE [None]
  - BLOOD PRESSURE INCREASED [None]
